FAERS Safety Report 4682908-5 (Version None)
Quarter: 2005Q2

REPORT INFORMATION
  Report Type: 
  Country: None (occurrence: None)
  Receive Date: 20050606
  Receipt Date: 20050113
  Transmission Date: 20051028
  Serious: Yes (Death, Hospitalization, Congenital Anomaly)
  Sender: FDA-Public Use
  Company Number: DK-NOVOPROD-241648

PATIENT
  Age: 1 Day
  Sex: Female
  Weight: 3 kg

DRUGS (6)
  1. NPH INSULIN [Concomitant]
     Indication: DIABETES MELLITUS INSULIN-DEPENDENT
     Dosage: 54 IU, QD
     Route: 015
     Dates: start: 20040630
  2. PARACETAMOL [Concomitant]
     Route: 015
     Dates: start: 19900101
  3. GRAVITAMON [Concomitant]
     Dosage: 1 TAB, QD
     Route: 015
     Dates: start: 20040616
  4. CLOTRIMAZOLE [Concomitant]
     Route: 015
     Dates: start: 20041001, end: 20041007
  5. ALMINOX [Concomitant]
     Dosage: UNK, UNK
     Route: 015
     Dates: start: 20041114
  6. NOVORAPID PENFILL 3.0 ML [Suspect]
     Indication: DIABETES MELLITUS INSULIN-DEPENDENT
     Dosage: 25 IU, QD
     Route: 015
     Dates: start: 20040630

REACTIONS (3)
  - CONGENITAL ANOMALY [None]
  - DRUG EXPOSURE DURING PREGNANCY [None]
  - TRUNCUS ARTERIOSUS PERSISTENT [None]
